FAERS Safety Report 8893260 (Version 8)
Quarter: 2013Q4

REPORT INFORMATION
  Report Type: Spontaneous
  Country: US (occurrence: None)
  Receive Date: 20121031
  Receipt Date: 20131122
  Transmission Date: 20140711
  Serious: Yes (Hospitalization, Other)
  Sender: FDA-Public Use
  Company Number: ADR-2012-01983

PATIENT
  Sex: Female

DRUGS (9)
  1. BACLOFEN [Suspect]
     Indication: PAIN
  2. BACLOFEN [Suspect]
  3. MORPHINE [Suspect]
     Indication: PAIN
  4. DILAUDID [Suspect]
  5. FENTANYL [Suspect]
  6. MORPHINE ORAL [Suspect]
  7. BACLOFEN [Suspect]
  8. FENTANYL [Suspect]
  9. BUPIVACAINE [Suspect]

REACTIONS (32)
  - Road traffic accident [None]
  - Device dislocation [None]
  - Device malfunction [None]
  - Fall [None]
  - Contusion [None]
  - Withdrawal syndrome [None]
  - Malaise [None]
  - Dehydration [None]
  - Treatment noncompliance [None]
  - Gastritis [None]
  - Implant site pain [None]
  - Medical device complication [None]
  - Muscle spasms [None]
  - Abasia [None]
  - Foot fracture [None]
  - Overdose [None]
  - Device infusion issue [None]
  - Adverse drug reaction [None]
  - Hypoaesthesia [None]
  - Drug intolerance [None]
  - Hypersomnia [None]
  - Hypoaesthesia [None]
  - Fear [None]
  - Therapeutic response decreased [None]
  - Device inversion [None]
  - Pain [None]
  - Abdominal pain [None]
  - Arthralgia [None]
  - Pain in extremity [None]
  - Cognitive disorder [None]
  - Inadequate analgesia [None]
  - Muscle spasticity [None]
